FAERS Safety Report 8854718 (Version 3)
Quarter: 2013Q1

REPORT INFORMATION
  Report Type: Report from Study
  Country: JP (occurrence: JP)
  Receive Date: 20121023
  Receipt Date: 20130207
  Transmission Date: 20140127
  Serious: Yes (Hospitalization, Other)
  Sender: FDA-Public Use
  Company Number: JP-009507513-1210JPN008832

PATIENT
  Age: 59 Year
  Sex: Male
  Weight: 70 kg

DRUGS (10)
  1. PEGINTRON [Suspect]
     Indication: CHRONIC HEPATITIS C
     Dosage: 1.5 MICROGRAM PER KILOGRAM, QW
     Route: 058
     Dates: start: 20120807, end: 20121029
  2. REBETOL [Suspect]
     Indication: CHRONIC HEPATITIS C
     Dosage: 800 MG, QD
     Route: 048
     Dates: start: 20120807, end: 20120826
  3. REBETOL [Suspect]
     Dosage: 600 MG, QD
     Route: 048
     Dates: start: 20120827, end: 20120902
  4. REBETOL [Suspect]
     Dosage: 400 MG, QD
     Route: 048
     Dates: start: 20120903, end: 20121008
  5. REBETOL [Suspect]
     Dosage: 200 MG, UNK
     Route: 048
     Dates: start: 20121009, end: 20121104
  6. TELAVIC [Suspect]
     Indication: CHRONIC HEPATITIS C
     Dosage: 2250 MG, QD
     Route: 048
     Dates: start: 20120807, end: 20120826
  7. TELAVIC [Suspect]
     Dosage: 1500 MG, QD
     Route: 048
     Dates: start: 20120827, end: 20121011
  8. TELAVIC [Suspect]
     Dosage: 750 MG, QD
     Route: 048
     Dates: start: 20121012, end: 20121029
  9. AMLODIN OD [Concomitant]
     Indication: HYPERTENSION
     Dosage: 5 MG, QD, FORMULATION POR
     Route: 048
     Dates: end: 20121126
  10. REBAMIPIDE [Concomitant]
     Indication: PROPHYLAXIS
     Dosage: 300 MG, QD, FORMULATION: POR
     Route: 048
     Dates: start: 20121012, end: 20121113

REACTIONS (3)
  - Decreased appetite [Not Recovered/Not Resolved]
  - White blood cell count decreased [Not Recovered/Not Resolved]
  - Anaemia [Not Recovered/Not Resolved]
